FAERS Safety Report 18201140 (Version 1)
Quarter: 2020Q3

REPORT INFORMATION
  Report Type: Spontaneous
  Country: IT (occurrence: IT)
  Receive Date: 20200827
  Receipt Date: 20200827
  Transmission Date: 20201103
  Serious: Yes (Other)
  Sender: FDA-Public Use
  Company Number: IT-SAMSUNG BIOEPIS-SB-2020-26907

PATIENT
  Age: 37 Year
  Sex: Male

DRUGS (1)
  1. FLIXABI [Suspect]
     Active Substance: INFLIXIMAB
     Indication: ANKYLOSING SPONDYLITIS
     Route: 042
     Dates: start: 20200107, end: 20200508

REACTIONS (3)
  - Arthritis [Unknown]
  - Product substitution issue [Unknown]
  - Spinal pain [Unknown]

NARRATIVE: CASE EVENT DATE: 20200306
